FAERS Safety Report 24080035 (Version 1)
Quarter: 2024Q3

REPORT INFORMATION
  Report Type: Spontaneous
  Country: CN (occurrence: CN)
  Receive Date: 20240711
  Receipt Date: 20240711
  Transmission Date: 20241016
  Serious: Yes (Other)
  Sender: PURDUE
  Company Number: CN-NAPPMUNDI-GBR-2024-0118035

PATIENT
  Age: 71 Year
  Sex: Male
  Weight: 60 kg

DRUGS (5)
  1. MS CONTIN [Suspect]
     Active Substance: MORPHINE SULFATE
     Indication: Headache
     Dosage: 30 MILLIGRAM, BID
     Route: 048
     Dates: start: 20240610, end: 202406
  2. MS CONTIN [Suspect]
     Active Substance: MORPHINE SULFATE
     Dosage: 10 MILLIGRAM, DAILY
     Route: 048
     Dates: start: 20240611, end: 20240611
  3. MS CONTIN [Suspect]
     Active Substance: MORPHINE SULFATE
     Dosage: 10 MILLIGRAM, DAILY
     Route: 048
     Dates: start: 20240612, end: 20240612
  4. MS CONTIN [Suspect]
     Active Substance: MORPHINE SULFATE
     Dosage: 10 MILLIGRAM, BID
     Route: 048
     Dates: start: 20240612, end: 20240623
  5. MORPHINE HYDROCHLORIDE [Suspect]
     Active Substance: MORPHINE HYDROCHLORIDE
     Indication: Headache
     Dosage: 10 MILLIGRAM, DAILY
     Route: 048
     Dates: start: 20240611, end: 20240611

REACTIONS (1)
  - Dysuria [Recovering/Resolving]

NARRATIVE: CASE EVENT DATE: 20240612
